FAERS Safety Report 6658714-9 (Version None)
Quarter: 2010Q1

REPORT INFORMATION
  Report Type: 
  Country: None (occurrence: None)
  Receive Date: 20100330
  Receipt Date: 20100319
  Transmission Date: 20100710
  Serious: Yes (Hospitalization, Other)
  Sender: FDA-Public Use
  Company Number: PHHO2005CA04823

PATIENT
  Sex: Female

DRUGS (3)
  1. SANDOSTATIN LAR [Suspect]
     Indication: ACROMEGALY
     Dosage: 20 MG EVERY 4 WEEKS
     Route: 030
     Dates: start: 20041028
  2. PAXIL [Concomitant]
     Dosage: 60 MG, UNK
     Route: 048
  3. WELLBUTRIN [Concomitant]
     Dosage: 150 MG, UNK
     Route: 048

REACTIONS (25)
  - BACK PAIN [None]
  - BLOOD HUMAN CHORIONIC GONADOTROPIN INCREASED [None]
  - FACIAL PAIN [None]
  - FATIGUE [None]
  - HEADACHE [None]
  - HYPOAESTHESIA [None]
  - INFLUENZA [None]
  - INSOMNIA [None]
  - JAW DISORDER [None]
  - MALAISE [None]
  - MASTICATION DISORDER [None]
  - MIGRAINE [None]
  - MOVEMENT DISORDER [None]
  - MULTIPLE SCLEROSIS [None]
  - NAUSEA [None]
  - NECK PAIN [None]
  - PAIN [None]
  - PAIN IN EXTREMITY [None]
  - PAIN IN JAW [None]
  - PHOTOPHOBIA [None]
  - SOMNOLENCE [None]
  - SPEECH DISORDER [None]
  - SPONDYLOLISTHESIS [None]
  - VISUAL IMPAIRMENT [None]
  - WEIGHT DECREASED [None]
